FAERS Safety Report 4596194-8 (Version None)
Quarter: 2005Q1

REPORT INFORMATION
  Report Type: 
  Country: None (occurrence: None)
  Receive Date: 20050225
  Receipt Date: 20050218
  Transmission Date: 20050727
  Serious: Yes (Life-Threatening)
  Sender: FDA-Public Use
  Company Number: K200500242

PATIENT
  Age: 93 Year
  Sex: Female

DRUGS (10)
  1. ALTACE [Suspect]
     Indication: MYOCARDIAL ISCHAEMIA
     Dosage: 10 MG, QD, ORAL
     Route: 048
     Dates: start: 20030315, end: 20050126
  2. DICLOFENAC POTASSIUM [Suspect]
     Indication: PAIN
     Dosage: 150 MG, QD, ORAL
     Route: 048
     Dates: start: 20050121, end: 20050126
  3. MORPHINE SULFATE [Concomitant]
  4. MORPHINE SULFATE [Concomitant]
  5. AMITRIPTYLINE HCL [Concomitant]
  6. CO-DANTHRUSATE (DANTRON, DOCUSATE SODIUM) TABLET [Concomitant]
  7. ASPIRIN [Concomitant]
  8. ALENDRONATE SODIUM (ALENDRONATE SODIUM0 [Concomitant]
  9. FRUSEMIDE (FRUSEMIDE) [Concomitant]
  10. OMEPRAZOLE [Concomitant]

REACTIONS (4)
  - CONFUSIONAL STATE [None]
  - FALL [None]
  - RENAL FAILURE ACUTE [None]
  - THERAPEUTIC AGENT TOXICITY [None]
